FAERS Safety Report 11086929 (Version 3)
Quarter: 2015Q2

REPORT INFORMATION
  Report Type: Report from Study
  Country: CA (occurrence: CA)
  Receive Date: 20150504
  Receipt Date: 20150518
  Transmission Date: 20150821
  Serious: Yes (Other)
  Sender: FDA-Public Use
  Company Number: CA-ROCHE-1565871

PATIENT
  Age: 70 Year
  Sex: Male
  Weight: 89 kg

DRUGS (1)
  1. AVASTIN [Suspect]
     Active Substance: BEVACIZUMAB
     Indication: GLIOBLASTOMA
     Route: 042
     Dates: start: 20150402, end: 20150430

REACTIONS (9)
  - Anxiety [Not Recovered/Not Resolved]
  - Skin lesion [Not Recovered/Not Resolved]
  - Cough [Not Recovered/Not Resolved]
  - Alanine aminotransferase increased [Unknown]
  - Depression [Not Recovered/Not Resolved]
  - Confusional state [Unknown]
  - Monocyte count increased [Unknown]
  - Contusion [Not Recovered/Not Resolved]
  - Weight decreased [Not Recovered/Not Resolved]

NARRATIVE: CASE EVENT DATE: 20150413
